FAERS Safety Report 7590691-9 (Version None)
Quarter: 2011Q3

REPORT INFORMATION
  Report Type: 
  Country: None (occurrence: None)
  Receive Date: 20110705
  Receipt Date: 20110630
  Transmission Date: 20111222
  Serious: Yes (Other)
  Sender: FDA-Public Use
  Company Number: CA-PFIZER INC-2011148881

PATIENT

DRUGS (1)
  1. PREGABALIN [Suspect]

REACTIONS (2)
  - RESPIRATORY DEPRESSION [None]
  - SLEEP APNOEA SYNDROME [None]
